FAERS Safety Report 21286487 (Version 1)
Quarter: 2022Q3

REPORT INFORMATION
  Report Type: Spontaneous
  Country: BR (occurrence: BR)
  Receive Date: 20220902
  Receipt Date: 20220902
  Transmission Date: 20221027
  Serious: Yes (Other)
  Sender: FDA-Public Use
  Company Number: BR-PFIZER INC-202201103587

PATIENT
  Sex: Female

DRUGS (1)
  1. LORAZEPAM [Suspect]
     Active Substance: LORAZEPAM
     Dosage: UNK
     Dates: start: 1984

REACTIONS (6)
  - Drug dependence [Unknown]
  - Seizure [Unknown]
  - Nervousness [Unknown]
  - Crying [Unknown]
  - Feeling abnormal [Unknown]
  - Product use issue [Unknown]
